FAERS Safety Report 24752481 (Version 1)
Quarter: 2024Q4

REPORT INFORMATION
  Report Type: Spontaneous
  Country: IT (occurrence: IT)
  Receive Date: 20241219
  Receipt Date: 20241219
  Transmission Date: 20250114
  Serious: Yes (Hospitalization, Other)
  Sender: AUROBINDO
  Company Number: IT-AUROBINDO-AUR-APL-2021-018538

PATIENT
  Age: 45 Year
  Sex: Female

DRUGS (3)
  1. ERTAPENEM [Suspect]
     Active Substance: ERTAPENEM
     Indication: Staphylococcal infection
     Dosage: 1 GRAM, ONCE A DAY
     Route: 042
  2. LEVOFLOXACIN [Suspect]
     Active Substance: LEVOFLOXACIN
     Indication: Staphylococcal infection
     Dosage: 500 MILLIGRAM, ONCE A DAY
     Route: 042
  3. ERTAPENEM [Concomitant]
     Active Substance: ERTAPENEM
     Indication: Staphylococcal infection
     Dosage: 1 GRAM
     Route: 065

REACTIONS (5)
  - Seizure [Recovered/Resolved]
  - Generalised tonic-clonic seizure [Recovered/Resolved]
  - Psychomotor retardation [Recovered/Resolved]
  - Loss of consciousness [Recovered/Resolved]
  - Panniculitis [Unknown]
